FAERS Safety Report 10082051 (Version 2)
Quarter: 2014Q2

REPORT INFORMATION
  Report Type: Spontaneous
  Country: US (occurrence: US)
  Receive Date: 20140416
  Receipt Date: 20140515
  Transmission Date: 20141212
  Serious: No
  Sender: FDA-Public Use
  Company Number: US-B.I. PHARMACEUTICALS,INC./RIDGEFIELD-2014-BI-15883BP

PATIENT
  Age: 72 Year
  Sex: Female
  Weight: 59 kg

DRUGS (12)
  1. SPIRIVA [Suspect]
     Indication: SECRETION DISCHARGE
     Dosage: 18 MCG
     Route: 055
     Dates: start: 2012
  2. VENTOLIN [Concomitant]
     Indication: CHRONIC OBSTRUCTIVE PULMONARY DISEASE
     Dosage: 8 PUF
     Route: 055
  3. VENTOLIN [Concomitant]
     Dosage: FORMULATION: INHALATION AEROSOL
     Route: 055
  4. DULERA [Concomitant]
     Indication: CHRONIC OBSTRUCTIVE PULMONARY DISEASE
     Dosage: 4 PUF
     Route: 055
  5. VERAPAMIL [Concomitant]
     Indication: HYPERTENSION
     Dosage: 180 MG
     Route: 048
  6. ZOCOR [Concomitant]
     Indication: BLOOD CHOLESTEROL INCREASED
     Dosage: 10 MG
     Route: 048
  7. ISOSORBIDE [Concomitant]
     Indication: PROPHYLAXIS
     Dosage: 20 MG
     Route: 048
  8. ASPIRIN [Concomitant]
     Indication: ANTICOAGULANT THERAPY
     Dosage: 325 MG
     Route: 048
  9. VITAMIN C [Concomitant]
     Dosage: 1 ANZ
     Route: 048
  10. VITAMIN D [Concomitant]
     Dosage: 1 ANZ
     Route: 048
  11. CALCIUM [Concomitant]
     Dosage: 1 ANZ
     Route: 048
  12. MAGNESIUM [Concomitant]
     Dosage: 1 ANZ
     Route: 048

REACTIONS (3)
  - Dyspnoea [Not Recovered/Not Resolved]
  - Product quality issue [Recovered/Resolved]
  - Product quality issue [Recovered/Resolved]
